FAERS Safety Report 6481339-5 (Version None)
Quarter: 2009Q4

REPORT INFORMATION
  Report Type: 
  Country: None (occurrence: None)
  Receive Date: 20091208
  Receipt Date: 20091126
  Transmission Date: 20100525
  Serious: Yes (Hospitalization)
  Sender: FDA-Public Use
  Company Number: B0603224A

PATIENT
  Sex: Male

DRUGS (2)
  1. LOVAZA [Suspect]
     Indication: THROMBOSIS PROPHYLAXIS
     Dosage: 4000MG PER DAY
     Route: 048
     Dates: start: 20090807, end: 20091016
  2. BLINDED TRIAL MEDICATION [Suspect]
     Dosage: 100MG PER DAY
     Route: 048
     Dates: start: 20090807, end: 20091016

REACTIONS (7)
  - ARTERIOVENOUS FISTULA OPERATION [None]
  - ATRIAL FIBRILLATION [None]
  - DYSPNOEA [None]
  - PLEURAL EFFUSION [None]
  - PULMONARY OEDEMA [None]
  - TACHYCARDIA [None]
  - WEIGHT DECREASED [None]
